FAERS Safety Report 10194911 (Version 1)
Quarter: 2014Q2

REPORT INFORMATION
  Report Type: Spontaneous
  Country: US (occurrence: US)
  Receive Date: 20140526
  Receipt Date: 20140526
  Transmission Date: 20141212
  Serious: Yes (Other)
  Sender: FDA-Public Use
  Company Number: US-PFIZER INC-2014140578

PATIENT
  Sex: Male

DRUGS (2)
  1. LYRICA [Suspect]
     Dosage: 75 MG, 1X/DAY
  2. LYRICA [Suspect]
     Dosage: 150 MG, 2X/DAY

REACTIONS (5)
  - Suicidal ideation [Unknown]
  - Drug dependence [Unknown]
  - Nervousness [Unknown]
  - Feeling jittery [Unknown]
  - Anxiety [Unknown]
